FAERS Safety Report 6525719-8 (Version None)
Quarter: 2009Q4

REPORT INFORMATION
  Report Type: 
  Country: None (occurrence: None)
  Receive Date: 20091228
  Receipt Date: 20091214
  Transmission Date: 20100525
  Serious: Yes (Life-Threatening)
  Sender: FDA-Public Use
  Company Number: 1-21035056

PATIENT
  Age: 8 Year
  Weight: 14.9687 kg

DRUGS (1)
  1. ONDANSETRON [Suspect]
     Dosage: 2 MG (TOTAL), INTRAVENOUS
     Route: 042

REACTIONS (3)
  - APNOEA [None]
  - LOSS OF CONSCIOUSNESS [None]
  - SINUS BRADYCARDIA [None]
